FAERS Safety Report 8350429 (Version 5)
Quarter: 2013Q1

REPORT INFORMATION
  Report Type: Spontaneous
  Country: US (occurrence: US)
  Receive Date: 20120124
  Receipt Date: 20130207
  Transmission Date: 20140127
  Serious: No
  Sender: FDA-Public Use
  Company Number: US-PFIZER INC-2012015802

PATIENT
  Age: 59 Year
  Sex: Female

DRUGS (8)
  1. TIKOSYN [Suspect]
     Indication: BOWEL MOVEMENT IRREGULARITY
     Dosage: 500 UG, 2X/DAY
     Route: 048
     Dates: start: 20110927
  2. SIMVASTATIN [Concomitant]
     Dosage: 80 MG, 4X/DAY
  3. METOPROLOL [Concomitant]
     Dosage: 50 MG, 4X/DAY
  4. LASIX [Concomitant]
     Dosage: UNK
  5. CARDURA [Concomitant]
     Dosage: UNK
  6. LANTUS [Concomitant]
     Dosage: UNK
  7. CYMBALTA [Concomitant]
     Dosage: UNK
  8. ZOFRAN [Concomitant]
     Dosage: UNK

REACTIONS (2)
  - Medication residue present [Unknown]
  - Dyspepsia [Recovered/Resolved]
